FAERS Safety Report 21453188 (Version 3)
Quarter: 2022Q4

REPORT INFORMATION
  Report Type: Report from Study
  Country: US (occurrence: US)
  Receive Date: 20221013
  Receipt Date: 20221123
  Transmission Date: 20230113
  Serious: No
  Sender: FDA-Public Use
  Company Number: US-ABBVIE-4153437

PATIENT
  Age: 49 Year
  Sex: Male

DRUGS (3)
  1. SKYRIZI [Suspect]
     Active Substance: RISANKIZUMAB-RZAA
     Indication: Psoriatic arthropathy
     Dosage: FORM STRENGTH: 150 MILLIGRAM/MILLILITERS?WEEK 0
     Route: 058
     Dates: start: 20220827, end: 2022
  2. SKYRIZI [Suspect]
     Active Substance: RISANKIZUMAB-RZAA
     Indication: Psoriasis
     Dosage: FORM STRENGTH: 150 MILLIGRAM/MILLILITERS?WEEK 4
     Route: 058
     Dates: start: 20220924, end: 2022
  3. SKYRIZI [Suspect]
     Active Substance: RISANKIZUMAB-RZAA
     Dosage: FORM STRENGTH: 150MG
     Route: 058
     Dates: start: 2022

REACTIONS (3)
  - Melanocytic naevus [Unknown]
  - Therapeutic response shortened [Unknown]
  - Pruritus [Unknown]

NARRATIVE: CASE EVENT DATE: 20220901
